FAERS Safety Report 8797743 (Version 3)
Quarter: 2015Q2

REPORT INFORMATION
  Report Type: Report from Study
  Country: US (occurrence: US)
  Receive Date: 20120919
  Receipt Date: 20150407
  Transmission Date: 20150821
  Serious: Yes (Death)
  Sender: FDA-Public Use
  Company Number: US-ROCHE-1127603

PATIENT
  Age: 62 Year
  Sex: Female

DRUGS (39)
  1. AVASTIN [Suspect]
     Active Substance: BEVACIZUMAB
     Indication: COLON CANCER
     Route: 042
     Dates: start: 20100114, end: 20111110
  2. AVASTIN [Suspect]
     Active Substance: BEVACIZUMAB
     Indication: HEPATIC CANCER
     Route: 042
  3. ERBITUX [Concomitant]
     Active Substance: CETUXIMAB
     Route: 042
  4. ATROPINE [Concomitant]
     Active Substance: ATROPINE
     Route: 058
  5. TAGAMET [Concomitant]
     Active Substance: CIMETIDINE
     Route: 042
  6. DECADRON [Concomitant]
     Active Substance: DEXAMETHASONE
     Route: 042
  7. VASOTEC [Concomitant]
     Active Substance: ENALAPRIL MALEATE
     Route: 065
  8. LEUCOVORIN [Concomitant]
     Active Substance: LEUCOVORIN
     Route: 065
  9. EMLA [Concomitant]
     Active Substance: LIDOCAINE\PRILOCAINE
  10. CYTOXAN [Concomitant]
     Active Substance: CYCLOPHOSPHAMIDE
  11. AVASTIN [Suspect]
     Active Substance: BEVACIZUMAB
     Route: 042
  12. DECADRON [Concomitant]
     Active Substance: DEXAMETHASONE
     Route: 042
  13. ZOFRAN [Concomitant]
     Active Substance: ONDANSETRON HYDROCHLORIDE
     Route: 065
  14. IMODIUM [Concomitant]
     Active Substance: LOPERAMIDE HYDROCHLORIDE
  15. 5-FLUOROURACIL [Concomitant]
     Active Substance: FLUOROURACIL
     Route: 042
  16. 5-FLUOROURACIL [Concomitant]
     Active Substance: FLUOROURACIL
     Route: 042
  17. PROCRIT [Concomitant]
     Active Substance: ERYTHROPOIETIN
     Route: 058
  18. NEULASTA [Concomitant]
     Active Substance: PEGFILGRASTIM
     Route: 058
  19. GEMZAR [Concomitant]
     Active Substance: GEMCITABINE HYDROCHLORIDE
     Route: 065
  20. ABRAXANE [Concomitant]
     Active Substance: PACLITAXEL
  21. VICODIN [Concomitant]
     Active Substance: ACETAMINOPHEN\HYDROCODONE BITARTRATE
  22. PHENERGAN [Concomitant]
     Active Substance: PROMETHAZINE HYDROCHLORIDE
     Route: 042
  23. LEXAPRO [Concomitant]
     Active Substance: ESCITALOPRAM OXALATE
     Route: 065
  24. ERBITUX [Concomitant]
     Active Substance: CETUXIMAB
     Route: 042
  25. TYLENOL [Concomitant]
     Active Substance: ACETAMINOPHEN
     Route: 048
  26. BENADRYL [Concomitant]
     Active Substance: DIPHENHYDRAMINE HYDROCHLORIDE
     Route: 065
  27. CIMETIDINE [Concomitant]
     Active Substance: CIMETIDINE
     Route: 042
  28. MAG-OX [Concomitant]
     Active Substance: MAGNESIUM OXIDE
     Route: 065
  29. PREVACID SOLUTAB [Concomitant]
     Active Substance: LANSOPRAZOLE
     Route: 065
  30. ZITHROMAX [Concomitant]
     Active Substance: AZITHROMYCIN DIHYDRATE
  31. ALOXI [Concomitant]
     Active Substance: PALONOSETRON HYDROCHLORIDE
     Route: 065
  32. AVASTIN [Suspect]
     Active Substance: BEVACIZUMAB
     Route: 042
  33. ANZEMET [Concomitant]
     Active Substance: DOLASETRON MESYLATE
     Route: 042
  34. OXALIPLATIN. [Concomitant]
     Active Substance: OXALIPLATIN
     Route: 065
  35. NYSTATIN. [Concomitant]
     Active Substance: NYSTATIN
     Route: 065
  36. IRINOTECAN [Concomitant]
     Active Substance: IRINOTECAN
     Route: 065
  37. ACYCLOVIR. [Concomitant]
     Active Substance: ACYCLOVIR
     Route: 065
  38. NEOMYCIN [Concomitant]
     Active Substance: NEOMYCIN
     Route: 065
  39. CISPLATIN. [Concomitant]
     Active Substance: CISPLATIN

REACTIONS (36)
  - Asthenia [Unknown]
  - Tenderness [Unknown]
  - Muscle strain [Unknown]
  - Swelling face [Recovered/Resolved]
  - Disease progression [Fatal]
  - Arthritis [Unknown]
  - Hyperhidrosis [Unknown]
  - Diarrhoea [Unknown]
  - Bone pain [Unknown]
  - Pain [Recovered/Resolved]
  - Abdominal pain lower [Unknown]
  - Joint swelling [Unknown]
  - Pain in extremity [Unknown]
  - Abdominal pain [Unknown]
  - Depression [Unknown]
  - Dry skin [Unknown]
  - Skin fissures [Unknown]
  - Epistaxis [Unknown]
  - Lip ulceration [Unknown]
  - Temperature intolerance [Unknown]
  - Fatigue [Unknown]
  - Anaemia [Unknown]
  - Arthralgia [Unknown]
  - Hypomagnesaemia [Unknown]
  - Rash [Unknown]
  - Sinusitis [Recovered/Resolved]
  - Contusion [Recovered/Resolved]
  - Malaise [Unknown]
  - Headache [Unknown]
  - Erythema [Unknown]
  - Muscle spasms [Unknown]
  - Insomnia [Unknown]
  - Dermatitis acneiform [Unknown]
  - Weight decreased [Unknown]
  - Nausea [Unknown]
  - Face oedema [Recovered/Resolved]

NARRATIVE: CASE EVENT DATE: 20120130
